FAERS Safety Report 5861843-0 (Version None)
Quarter: 2008Q3

REPORT INFORMATION
  Report Type: 
  Country: None (occurrence: None)
  Receive Date: 20080826
  Receipt Date: 20080813
  Transmission Date: 20090109
  Serious: Yes (Hospitalization)
  Sender: FDA-Public Use
  Company Number: IPS_01241_2008

PATIENT
  Sex: Male

DRUGS (4)
  1. APO-GO (APO-GO PFS 5 MG/ML SOLUTION FOR INFUSION IN PRE-FILLED SYRINGE [Suspect]
     Indication: DRUG USE FOR UNKNOWN INDICATION
     Dosage: DF SUBCUTANEOUS
     Route: 058
     Dates: start: 19960101
  2. APO-GO (APO-GO AMPOULES 10 MG/ML SOLUTION FOR INJECTION - APOMORPHINE [Suspect]
     Indication: DRUG USE FOR UNKNOWN INDICATION
     Dosage: DF SUBCUTANEOUS
     Route: 058
     Dates: start: 19960101
  3. SINEMET [Concomitant]
  4. CARBIDOPA AND LEVODOPA [Concomitant]

REACTIONS (2)
  - FALL [None]
  - WHEELCHAIR USER [None]
